FAERS Safety Report 5190526-8 (Version None)
Quarter: 2006Q4

REPORT INFORMATION
  Report Type: 
  Country: None (occurrence: None)
  Receive Date: 20061222
  Receipt Date: 20061214
  Transmission Date: 20070319
  Serious: Yes (Hospitalization)
  Sender: FDA-Public Use
  Company Number: GB-ROCHE-475075

PATIENT
  Age: 73 Year
  Sex: Female
  Weight: 68.6 kg

DRUGS (4)
  1. CAPECITABINE [Suspect]
     Dosage: GIVEN FOR FOURTEEN DAYS, FOLLOWED BY A WEEK REST (THREE-WEEK-CYCLE).
     Route: 048
     Dates: start: 20041202, end: 20041218
  2. TRAMADOL HCL [Concomitant]
     Route: 048
  3. CYCLIZINE [Concomitant]
     Route: 048
     Dates: start: 20041202
  4. LANSOPRAZOLE [Concomitant]
     Route: 048

REACTIONS (4)
  - CHILLS [None]
  - NAUSEA [None]
  - PYREXIA [None]
  - VOMITING [None]
